FAERS Safety Report 6294402-9 (Version None)
Quarter: 2009Q3

REPORT INFORMATION
  Report Type: 
  Country: None (occurrence: None)
  Receive Date: 20090803
  Receipt Date: 20090721
  Transmission Date: 20100115
  Serious: Yes (Other)
  Sender: FDA-Public Use
  Company Number: US-ROCHE-641595

PATIENT
  Age: 34 Year
  Sex: Female

DRUGS (3)
  1. BONIVA [Suspect]
     Indication: OSTEOPENIA
     Route: 048
     Dates: start: 20080825, end: 20090501
  2. CALCIUM [Concomitant]
     Dosage: FREQUENCY: DAILY
     Route: 048
  3. ALENDRONIC ACID [Concomitant]

REACTIONS (4)
  - GASTRITIS HAEMORRHAGIC [None]
  - GASTROINTESTINAL BACTERIAL INFECTION [None]
  - HELICOBACTER INFECTION [None]
  - WRONG TECHNIQUE IN DRUG USAGE PROCESS [None]
